FAERS Safety Report 10764415 (Version 1)
Quarter: 2015Q1

REPORT INFORMATION
  Report Type: Not Available
  Country: FR (occurrence: FR)
  Receive Date: 20150205
  Receipt Date: 20150205
  Transmission Date: 20150721
  Serious: Yes (Other)
  Sender: FDA-Public Use
  Company Number: FR-BEH-2015048324

PATIENT
  Age: 76 Year
  Sex: Female

DRUGS (2)
  1. POLARAMINE [Concomitant]
     Active Substance: DEXCHLORPHENIRAMINE MALEATE
     Indication: PREMEDICATION
     Dosage: DOSE: ONE AMPOULE
     Dates: start: 20150106, end: 20150106
  2. PRIVIGEN [Suspect]
     Active Substance: HUMAN IMMUNOGLOBULIN G
     Dosage: 20 G LOT, RATE OF INF: 5ML/H INCREASED EVERY 15MIN, THEN AT HALF DOSE EVERY 30MIN UP TO 140ML/H
     Route: 042
     Dates: start: 20150106, end: 20150106

REACTIONS (11)
  - Gastrointestinal infection [Recovering/Resolving]
  - Leukocytosis [Recovering/Resolving]
  - Lung infection [Recovering/Resolving]
  - Diarrhoea [Recovering/Resolving]
  - Pyrexia [Recovering/Resolving]
  - Hyperthermia [Recovering/Resolving]
  - Infection [Recovering/Resolving]
  - Tachycardia [Recovered/Resolved]
  - C-reactive protein increased [Recovering/Resolving]
  - Skin discolouration [Recovering/Resolving]
  - Hypotension [Recovered/Resolved]

NARRATIVE: CASE EVENT DATE: 201501
